FAERS Safety Report 18154395 (Version 1)
Quarter: 2020Q3

REPORT INFORMATION
  Report Type: Spontaneous
  Country: DE (occurrence: DE)
  Receive Date: 20200817
  Receipt Date: 20200817
  Transmission Date: 20201103
  Serious: Yes (Hospitalization, Other)
  Sender: FDA-Public Use
  Company Number: DE-AUROBINDO-AUR-APL-2020-038854

PATIENT
  Age: 92 Year
  Sex: Female

DRUGS (6)
  1. VENLAFAXINE PROLONGED RELEASED CAPSULES [Suspect]
     Active Substance: VENLAFAXINE HYDROCHLORIDE
     Indication: PRODUCT USED FOR UNKNOWN INDICATION
     Dosage: 75 MILLIGRAM, ONCE A DAY, 1?0?0?0, RETARD?KAPSELN
     Route: 065
  2. RISPERIDONE FILM?COATED TABLET [Suspect]
     Active Substance: RISPERIDONE
     Indication: PRODUCT USED FOR UNKNOWN INDICATION
     Dosage: 0.5 MILLIGRAM, ONCE A DAY,(0.25 MG, 0?0?2?0, TABLETTEN)
     Route: 065
  3. PIPAMPERON [Suspect]
     Active Substance: PIPAMPERONE HYDROCHLORIDE
     Indication: PRODUCT USED FOR UNKNOWN INDICATION
     Dosage: 5 MILLIGRAM, TWO TIMES A DAY, 0?1?0?1, SAFT
     Route: 065
  4. VITAMIN D3 CALCIUM [Concomitant]
     Active Substance: CALCIUM\CHOLECALCIFEROL
     Indication: PRODUCT USED FOR UNKNOWN INDICATION
     Dosage: VIERMAL W?CHENTLICH
     Route: 065
  5. PANTOPRAZOL [Concomitant]
     Active Substance: PANTOPRAZOLE SODIUM
     Dosage: 40 MILLIGRAM, ONCE A DAY, 40 MG, 0?0?1?0, TABLETTEN
     Route: 065
  6. ACETYLSALICYLIC ACID [Concomitant]
     Active Substance: ASPIRIN
     Indication: PRODUCT USED FOR UNKNOWN INDICATION
     Dosage: 100 MILLIGRAM, ONCE A DAY, 100 MG, 0?1?0?0, TABLETTEN
     Route: 065

REACTIONS (4)
  - Brain contusion [Recovering/Resolving]
  - Fall [Recovering/Resolving]
  - Contusion [Recovering/Resolving]
  - Hypothermia [Recovering/Resolving]
